FAERS Safety Report 9620622 (Version 1)
Quarter: 2013Q4

REPORT INFORMATION
  Report Type: Spontaneous
  Country: US (occurrence: US)
  Receive Date: 20131015
  Receipt Date: 20131015
  Transmission Date: 20140711
  Serious: Yes (Other)
  Sender: FDA-Public Use
  Company Number: US-AMGEN-USASP2013071604

PATIENT
  Age: 57 Year
  Sex: Female

DRUGS (10)
  1. ENBREL [Suspect]
     Indication: PRODUCT USED FOR UNKNOWN INDICATION
     Dosage: 50 MG, ONCE A WEEK
     Route: 058
  2. EFFIENT [Concomitant]
     Dosage: 1 MG, UNK
     Route: 048
  3. METOPROLOL [Concomitant]
     Dosage: 100 MG, UNK
     Route: 048
  4. SPIRONOLACTON [Concomitant]
     Dosage: 100 MG, UNK
     Route: 048
  5. NEURONTIN [Concomitant]
     Dosage: 300 MG, UNK
     Route: 048
  6. TRAMADOL HCL [Concomitant]
     Dosage: 50 MG, UNK
     Route: 048
  7. ARAVA [Concomitant]
     Dosage: 10 MG, UNK
     Route: 048
  8. BABY ASPIRIN [Concomitant]
     Dosage: 81 MG, UNK
     Route: 048
  9. WELCHOL [Concomitant]
     Dosage: 625 MG, UNK
     Route: 048
  10. VITAMIN D                          /00107901/ [Concomitant]
     Dosage: 400 UNIT, UNK
     Route: 048

REACTIONS (2)
  - Myocardial infarction [Unknown]
  - Therapeutic response decreased [Unknown]
